FAERS Safety Report 21095281 (Version 1)
Quarter: 2022Q3

REPORT INFORMATION
  Report Type: Spontaneous
  Country: US (occurrence: None)
  Receive Date: 20220716
  Receipt Date: 20220716
  Transmission Date: 20221027
  Serious: Yes (Other)
  Sender: FDA-Public Use
  Company Number: None

PATIENT
  Age: 50 Year
  Sex: Female
  Weight: 71.1 kg

DRUGS (7)
  1. VUITY [Suspect]
     Active Substance: PILOCARPINE HYDROCHLORIDE
     Indication: Hypermetropia
     Dosage: OTHER QUANTITY : 1 DROP(S);?FREQUENCY : DAILY;?OTHER ROUTE : NONE;?
     Route: 050
     Dates: start: 20220716, end: 20220716
  2. Alpha lipid acid [Concomitant]
  3. l carnitine joint support [Concomitant]
  4. VITAMIN C [Concomitant]
     Active Substance: ASCORBIC ACID
  5. ZINC [Concomitant]
     Active Substance: ZINC
  6. VITAMIN B COMPLEX [Concomitant]
     Active Substance: CYANOCOBALAMIN\DEXPANTHENOL\NIACINAMIDE\PYRIDOXINE HYDROCHLORIDE\RIBOFLAVIN 5^-PHOSPHATE SODIUM\THIA
  7. probiotic  digestive support advanced am [Concomitant]

REACTIONS (3)
  - Migraine [None]
  - Vitreous floaters [None]
  - Eye pain [None]

NARRATIVE: CASE EVENT DATE: 20220716
